FAERS Safety Report 9619247 (Version 2)
Quarter: 2013Q4

REPORT INFORMATION
  Report Type: Spontaneous
  Country: SE (occurrence: SE)
  Receive Date: 20131014
  Receipt Date: 20131030
  Transmission Date: 20140711
  Serious: Yes (Life-Threatening, Other)
  Sender: FDA-Public Use
  Company Number: SE-ELI_LILLY_AND_COMPANY-SE201310001704

PATIENT
  Age: 66 Year
  Sex: Male

DRUGS (2)
  1. ZYPREXA [Suspect]
     Indication: SCHIZOPHRENIA
     Dosage: 2.5 MG, QD
     Route: 048
     Dates: start: 20081028, end: 20130924
  2. AMLODIPIN                          /00972401/ [Concomitant]

REACTIONS (2)
  - Pulmonary embolism [Not Recovered/Not Resolved]
  - Deep vein thrombosis [Unknown]
